FAERS Safety Report 6028252-5 (Version None)
Quarter: 2008Q4

REPORT INFORMATION
  Report Type: 
  Country: None (occurrence: None)
  Receive Date: 20081231
  Receipt Date: 20081231
  Transmission Date: 20090506
  Serious: Yes (Hospitalization)
  Sender: FDA-Public Use
  Company Number: None

PATIENT
  Sex: Female
  Weight: 75 kg

DRUGS (2)
  1. CISPLATIN [Suspect]
     Dosage: 142 MG
  2. ETOPOSIDE [Suspect]
     Dosage: 540 MG

REACTIONS (8)
  - BACILLUS INFECTION [None]
  - BLOOD CULTURE POSITIVE [None]
  - HAEMOGLOBIN ABNORMAL [None]
  - NEUTROPHIL COUNT ABNORMAL [None]
  - PLATELET COUNT ABNORMAL [None]
  - PULMONARY EMBOLISM [None]
  - PYREXIA [None]
  - WHITE BLOOD CELL COUNT ABNORMAL [None]
